FAERS Safety Report 4604273-1 (Version None)
Quarter: 2005Q2

REPORT INFORMATION
  Report Type: 
  Country: None (occurrence: None)
  Receive Date: 20050214
  Receipt Date: 20041215
  Transmission Date: 20051028
  Serious: No
  Sender: FDA-Public Use
  Company Number: USA041286282

PATIENT
  Age: 66 Year
  Sex: Male

DRUGS (5)
  1. CIALIS [Suspect]
     Dosage: 20 MG
  2. LISINOPRIL [Concomitant]
  3. FAMOTIDINE [Concomitant]
  4. CHONDROITIN W/ GLUCOSAMINE [Concomitant]
  5. GINKGO BILBOA [Concomitant]

REACTIONS (1)
  - DRUG INEFFECTIVE [None]
